FAERS Safety Report 10879302 (Version 2)
Quarter: 2016Q1

REPORT INFORMATION
  Report Type: Spontaneous
  Country: US (occurrence: US)
  Receive Date: 20150302
  Receipt Date: 20160212
  Transmission Date: 20160525
  Serious: Yes (Other)
  Sender: FDA-Public Use
  Company Number: US-GLAXOSMITHKLINE-US2015GSK026444

PATIENT
  Sex: Male

DRUGS (2)
  1. LAMICTAL [Suspect]
     Active Substance: LAMOTRIGINE
     Indication: PRODUCT USED FOR UNKNOWN INDICATION
     Dosage: 150 MG
  2. LAMICTAL [Suspect]
     Active Substance: LAMOTRIGINE
     Dosage: 150MG AM, 225 MG PM

REACTIONS (2)
  - Disability [Unknown]
  - Aphasia [Unknown]
